FAERS Safety Report 12471409 (Version 1)
Quarter: 2016Q2

REPORT INFORMATION
  Report Type: Spontaneous
  Country: US (occurrence: None)
  Receive Date: 20160615
  Receipt Date: 20160615
  Transmission Date: 20160815
  Serious: Yes (Hospitalization)
  Sender: FDA-Public Use
  Company Number: None

PATIENT
  Age: 59 Year
  Sex: Male
  Weight: 112.7 kg

DRUGS (1)
  1. OXYCODONE [Suspect]
     Active Substance: OXYCODONE
     Indication: PAIN
     Route: 048
     Dates: start: 20160509, end: 20160523

REACTIONS (8)
  - Dyspnoea [None]
  - Hypertension [None]
  - Vomiting [None]
  - Insomnia [None]
  - Nausea [None]
  - Drug hypersensitivity [None]
  - Abdominal pain upper [None]
  - Dizziness [None]

NARRATIVE: CASE EVENT DATE: 20160523
